FAERS Safety Report 6123109-3 (Version None)
Quarter: 2009Q1

REPORT INFORMATION
  Report Type: 
  Country: None (occurrence: None)
  Receive Date: 20090318
  Receipt Date: 20090309
  Transmission Date: 20090719
  Serious: Yes (Hospitalization)
  Sender: FDA-Public Use
  Company Number: US-AVENTIS-200911951US

PATIENT
  Sex: Female

DRUGS (4)
  1. LANTUS [Suspect]
     Dosage: DOSE: UNK
     Route: 058
  2. HUMULIN 70/30 [Concomitant]
     Dosage: DOSE: UNK
  3. NOVOLOG MIX 70/30 [Concomitant]
     Dosage: DOSE: UNK
  4. MEALTIME INSULIN [Concomitant]
     Dosage: DOSE: UNK

REACTIONS (1)
  - NEOPLASM MALIGNANT [None]
